FAERS Safety Report 12482190 (Version 2)
Quarter: 2016Q2

REPORT INFORMATION
  Report Type: Spontaneous
  Country: US (occurrence: US)
  Receive Date: 20160620
  Receipt Date: 20160629
  Transmission Date: 20160815
  Serious: Yes (Hospitalization)
  Sender: FDA-Public Use
  Company Number: US-JNJFOC-20160614943

PATIENT
  Age: 70 Year
  Sex: Male

DRUGS (9)
  1. RISPERIDONE. [Suspect]
     Active Substance: RISPERIDONE
     Indication: AGGRESSION
     Route: 065
  2. HALOPERIDOL. [Suspect]
     Active Substance: HALOPERIDOL
     Indication: AGGRESSION
     Route: 065
  3. METOCLOPRAMIDE. [Concomitant]
     Active Substance: METOCLOPRAMIDE
     Route: 065
  4. MORPHINE [Concomitant]
     Active Substance: MORPHINE
     Route: 065
  5. QUETIAPINE. [Suspect]
     Active Substance: QUETIAPINE
     Indication: AGGRESSION
     Route: 065
  6. ASPIRIN. [Concomitant]
     Active Substance: ASPIRIN
     Route: 065
  7. SERTRALINE [Suspect]
     Active Substance: SERTRALINE HYDROCHLORIDE
     Indication: AGGRESSION
     Route: 065
  8. RISPERIDONE. [Suspect]
     Active Substance: RISPERIDONE
     Indication: AGGRESSION
     Dosage: RAPID INCREASE IN DOSE OF RISPERIDONE OVER THE PRIOR WEEK.
     Route: 065
  9. LITHIUM. [Concomitant]
     Active Substance: LITHIUM
     Route: 065

REACTIONS (10)
  - Abasia [Recovering/Resolving]
  - Catatonia [Recovering/Resolving]
  - Language disorder [Recovering/Resolving]
  - Hypertonia [Recovering/Resolving]
  - Resting tremor [Recovering/Resolving]
  - Urinary incontinence [Recovering/Resolving]
  - Drug administration error [Unknown]
  - Cogwheel rigidity [Not Recovered/Not Resolved]
  - Hyporeflexia [Recovering/Resolving]
  - Blood creatine phosphokinase increased [Recovering/Resolving]
